FAERS Safety Report 7959224-9 (Version None)
Quarter: 2011Q4

REPORT INFORMATION
  Report Type: 
  Country: None (occurrence: None)
  Receive Date: 20111206
  Receipt Date: 20111128
  Transmission Date: 20120403
  Serious: Yes (Hospitalization)
  Sender: FDA-Public Use
  Company Number: US-B.I. PHARMACEUTICALS,INC./RIDGEFIELD-2011-BP-26218BP

PATIENT
  Sex: Male

DRUGS (5)
  1. SPIRONOLACTONE [Concomitant]
     Indication: CARDIAC DISORDER
  2. PRADAXA [Suspect]
     Dosage: 150 MG
     Route: 048
     Dates: start: 20110913, end: 20111011
  3. ALLOPURINOL [Concomitant]
  4. DEXILANT [Concomitant]
     Indication: GASTROOESOPHAGEAL REFLUX DISEASE
     Dates: start: 20111019
  5. PRADAXA [Suspect]
     Indication: ATRIAL FIBRILLATION
     Dosage: 300 MG
     Route: 048
     Dates: start: 20110823, end: 20110913

REACTIONS (1)
  - NAUSEA [None]
